FAERS Safety Report 5714734-X (Version None)
Quarter: 2008Q2

REPORT INFORMATION
  Report Type: 
  Country: None (occurrence: None)
  Receive Date: 20080423
  Receipt Date: 20041108
  Transmission Date: 20081010
  Serious: Yes (Death)
  Sender: FDA-Public Use
  Company Number: DE-ROCHE-385565

PATIENT
  Sex: Female
  Weight: 89 kg

DRUGS (8)
  1. CAPECITABINE [Suspect]
     Route: 048
     Dates: start: 20040327, end: 20041010
  2. CAPECITABINE [Suspect]
     Route: 048
     Dates: start: 20041018, end: 20041031
  3. AMLODIPINE [Concomitant]
     Dosage: TAKEN AM
     Route: 048
     Dates: end: 20041102
  4. ALLO 300 [Concomitant]
     Dosage: TAKEN PM
     Route: 048
     Dates: end: 20041102
  5. THEOPHYLLINE [Concomitant]
     Dosage: TAKEN AM
     Route: 048
     Dates: end: 20041102
  6. PROVAS [Concomitant]
     Dosage: TAKEN IN THE MIDDLE OF THE DAY NAME ILLEGIBLE, COULD BE PROVID 80
     Dates: end: 20041102
  7. DURAFENAT RETARD [Concomitant]
     Dosage: TAKEN PM NAME ILLEGIBLE, COULD BE DURAFLUNT
     Route: 048
     Dates: end: 20041102
  8. GLURENORM [Concomitant]
     Dosage: TAKEN AM
     Route: 048
     Dates: end: 20041102

REACTIONS (1)
  - DEATH [None]
